FAERS Safety Report 21243488 (Version 5)
Quarter: 2022Q4

REPORT INFORMATION
  Report Type: Spontaneous
  Country: DK (occurrence: DK)
  Receive Date: 20220823
  Receipt Date: 20221120
  Transmission Date: 20230113
  Serious: Yes (Other)
  Sender: FDA-Public Use
  Company Number: DK-BMKK-BMS-2018-021417AA

PATIENT
  Age: 74 Year
  Sex: Female

DRUGS (29)
  1. CARBOPLATIN [Suspect]
     Active Substance: CARBOPLATIN
     Indication: Plasma cell myeloma
     Dosage: UNK
     Route: 065
  2. THALIDOMIDE [Suspect]
     Active Substance: THALIDOMIDE
     Indication: Plasma cell myeloma
     Dosage: UNK
     Route: 065
  3. IRINOTECAN [Suspect]
     Active Substance: IRINOTECAN
     Indication: Plasma cell myeloma
     Route: 065
  4. IRINOTECAN [Suspect]
     Active Substance: IRINOTECAN
     Dosage: UNK
     Route: 065
  5. IRINOTECAN [Suspect]
     Active Substance: IRINOTECAN
     Route: 065
  6. AREDIA [Suspect]
     Active Substance: PAMIDRONATE DISODIUM
     Indication: Plasma cell myeloma
     Route: 065
  7. AREDIA [Suspect]
     Active Substance: PAMIDRONATE DISODIUM
     Route: 065
  8. AREDIA [Suspect]
     Active Substance: PAMIDRONATE DISODIUM
     Route: 065
  9. ATORVASTATIN CALCIUM [Suspect]
     Active Substance: ATORVASTATIN CALCIUM
     Indication: Plasma cell myeloma
     Route: 065
  10. ALKERAN (MELPHALAN HYDROCHLORIDE) [Suspect]
     Active Substance: MELPHALAN HYDROCHLORIDE
     Indication: Plasma cell myeloma
     Route: 065
  11. ALKERAN (MELPHALAN HYDROCHLORIDE) [Suspect]
     Active Substance: MELPHALAN HYDROCHLORIDE
  12. CAPECITABINE\OXALIPLATIN [Suspect]
     Active Substance: CAPECITABINE\OXALIPLATIN
     Indication: Plasma cell myeloma
     Route: 065
  13. CAPECITABINE\OXALIPLATIN [Suspect]
     Active Substance: CAPECITABINE\OXALIPLATIN
  14. ALIMTA [Suspect]
     Active Substance: PEMETREXED DISODIUM
     Indication: Plasma cell myeloma
     Dosage: UNK
     Route: 065
  15. ALIMTA [Suspect]
     Active Substance: PEMETREXED DISODIUM
  16. BRIPLATIN [Suspect]
     Active Substance: CISPLATIN
     Indication: Plasma cell myeloma
     Dosage: UNK
     Route: 065
  17. TEMOZOLOMIDE [Suspect]
     Active Substance: TEMOZOLOMIDE
     Indication: Plasma cell myeloma
     Route: 065
  18. VINORELBINE [Suspect]
     Active Substance: VINORELBINE TARTRATE
     Indication: Plasma cell myeloma
     Dosage: UNK
     Route: 065
  19. FLUOROURACIL [Suspect]
     Active Substance: FLUOROURACIL
     Indication: Plasma cell myeloma
     Route: 065
  20. IRINOTECAN HYDROCHLORIDE [Suspect]
     Active Substance: IRINOTECAN HYDROCHLORIDE
     Indication: Plasma cell myeloma
     Route: 065
  21. CISPLATIN [Suspect]
     Active Substance: CISPLATIN
     Indication: Plasma cell myeloma
     Dosage: UNK
     Route: 065
  22. ERBITUX [Suspect]
     Active Substance: CETUXIMAB
     Indication: Plasma cell myeloma
     Route: 065
  23. CYCLOPHOSPHAMIDE [Suspect]
     Active Substance: CYCLOPHOSPHAMIDE
     Indication: Plasma cell myeloma
     Route: 065
  24. AVASTIN [Suspect]
     Active Substance: BEVACIZUMAB
     Indication: Plasma cell myeloma
     Route: 065
  25. PEMETREXED DISODIUM [Suspect]
     Active Substance: PEMETREXED DISODIUM
     Indication: Plasma cell myeloma
     Dosage: UNK
     Route: 065
  26. FLUOROURACIL\IRINOTECAN\LEUCOVORIN [Concomitant]
     Active Substance: FLUOROURACIL\IRINOTECAN\LEUCOVORIN
     Indication: Plasma cell myeloma
     Route: 065
  27. LEUCOVORIN [Concomitant]
     Active Substance: LEUCOVORIN
     Indication: Plasma cell myeloma
     Dosage: UNK
     Route: 065
  28. LEUCOVORIN [Concomitant]
     Active Substance: LEUCOVORIN
     Dosage: UNK
     Route: 065
  29. FLUOROURACIL [Concomitant]
     Active Substance: FLUOROURACIL
     Indication: Plasma cell myeloma
     Dosage: UNK
     Route: 065

REACTIONS (1)
  - Osteonecrosis of jaw [Recovered/Resolved]

NARRATIVE: CASE EVENT DATE: 20120924
